FAERS Safety Report 9146401 (Version 1)
Quarter: 2013Q1

REPORT INFORMATION
  Report Type: Spontaneous
  Country: US (occurrence: None)
  Receive Date: 20130205
  Receipt Date: 20130205
  Transmission Date: 20140127
  Serious: Yes (Death)
  Sender: FDA-Public Use
  Company Number: IMP_06207_2013

PATIENT
  Age: 47 Year
  Sex: Female

DRUGS (6)
  1. BUPROPION [Suspect]
     Dosage: (DF)
  2. QUETIAPINE [Suspect]
     Dosage: (DF)
  3. GABAPENTIN [Suspect]
     Dosage: (DF)
  4. LORAZEPAM [Suspect]
     Dosage: (DF)
  5. SERTRALINE [Suspect]
     Dosage: (DF)
  6. OXCARBAZEPINE [Suspect]
     Dosage: (DF)

REACTIONS (3)
  - Aspiration [None]
  - Poisoning [None]
  - Completed suicide [None]
